FAERS Safety Report 5819229-0 (Version None)
Quarter: 2008Q3

REPORT INFORMATION
  Report Type: 
  Country: None (occurrence: None)
  Receive Date: 20080723
  Receipt Date: 20080715
  Transmission Date: 20090109
  Serious: Yes (Hospitalization)
  Sender: FDA-Public Use
  Company Number: JP-ROCHE-576634

PATIENT
  Age: 81 Year
  Sex: Female

DRUGS (4)
  1. LUPRAC [Suspect]
     Indication: CARDIAC FAILURE
     Route: 048
  2. DEPAS [Suspect]
     Indication: ANXIETY
     Route: 048
  3. MICARDIS [Suspect]
     Indication: BLOOD PRESSURE INCREASED
     Route: 048
  4. SIGMART [Concomitant]
     Route: 048

REACTIONS (1)
  - RHABDOMYOLYSIS [None]
